FAERS Safety Report 5717122-5 (Version None)
Quarter: 2008Q2

REPORT INFORMATION
  Report Type: 
  Country: None (occurrence: None)
  Receive Date: 20080424
  Receipt Date: 20080414
  Transmission Date: 20081010
  Serious: Yes (Other)
  Sender: FDA-Public Use
  Company Number: ES-PFIZER INC-2008032244

PATIENT
  Age: 46 Year
  Sex: Female

DRUGS (6)
  1. PREGABALIN [Suspect]
     Indication: THERMAL BURN
     Route: 048
     Dates: start: 20070709, end: 20070713
  2. ATARAX [Concomitant]
     Route: 048
  3. FERRO SANOL [Concomitant]
     Route: 048
  4. ACETAMINOPHEN [Concomitant]
     Route: 048
  5. DIAZEPAM [Concomitant]
     Route: 048
  6. OMEPRAZOLE [Concomitant]
     Route: 048

REACTIONS (2)
  - HYPERAESTHESIA [None]
  - HYPERTENSION [None]
